FAERS Safety Report 6017224-2 (Version None)
Quarter: 2008Q4

REPORT INFORMATION
  Report Type: 
  Country: None (occurrence: None)
  Receive Date: 20081223
  Receipt Date: 20081218
  Transmission Date: 20090506
  Serious: Yes (Other)
  Sender: FDA-Public Use
  Company Number: US-ASTRAZENECA-2006UW01883

PATIENT
  Age: 78 Year
  Sex: Female
  Weight: 81.6 kg

DRUGS (5)
  1. TOPROL-XL [Suspect]
     Indication: ARRHYTHMIA
     Route: 048
     Dates: start: 19900101
  2. TOPROL-XL [Suspect]
     Indication: HYPERTENSION
     Route: 048
     Dates: start: 19900101
  3. SYNTHROID [Concomitant]
  4. CLARITIN [Concomitant]
  5. SUPPLEMENTS [Concomitant]

REACTIONS (7)
  - CARDIAC FAILURE [None]
  - CARDIAC OUTPUT DECREASED [None]
  - CATARACT [None]
  - DYSPNOEA [None]
  - INFLUENZA [None]
  - KNEE ARTHROPLASTY [None]
  - VOMITING [None]
